FAERS Safety Report 14075085 (Version 5)
Quarter: 2017Q4

REPORT INFORMATION
  Report Type: Report from Study
  Country: US (occurrence: US)
  Receive Date: 20171011
  Receipt Date: 20171213
  Transmission Date: 20180321
  Serious: Yes (Hospitalization, Other)
  Sender: FDA-Public Use
  Company Number: US-PFIZER INC-2017433910

PATIENT
  Age: 61 Year
  Sex: Female

DRUGS (3)
  1. LEVOTHYROXINE. [Concomitant]
     Active Substance: LEVOTHYROXINE
     Dosage: UNK
  2. IBRANCE [Suspect]
     Active Substance: PALBOCICLIB
     Indication: BREAST CANCER
     Dosage: 125 MG, DAILY(QD)
     Route: 048
     Dates: start: 20170923
  3. FASLODEX [Suspect]
     Active Substance: FULVESTRANT
     Dosage: UNK

REACTIONS (14)
  - Arthropathy [Unknown]
  - Asthenia [Unknown]
  - Condition aggravated [Unknown]
  - Pain in extremity [Unknown]
  - Pruritus [Unknown]
  - Fatigue [Unknown]
  - Musculoskeletal pain [Unknown]
  - White blood cell count decreased [Unknown]
  - Thyroid disorder [Unknown]
  - Groin pain [Unknown]
  - Uterine leiomyoma [Unknown]
  - Sensory disturbance [Unknown]
  - Erythema [Unknown]
  - Haemoglobin decreased [Unknown]

NARRATIVE: CASE EVENT DATE: 2017
